FAERS Safety Report 9009044 (Version 3)
Quarter: 2018Q2

REPORT INFORMATION
  Report Type: Spontaneous
  Country: FR (occurrence: FR)
  Receive Date: 20130111
  Receipt Date: 20180406
  Transmission Date: 20180711
  Serious: Yes (Hospitalization)
  Sender: FDA-Public Use
  Company Number: FR-CELGENEUS-056-FK228-13010614

PATIENT
  Age: 60 Year
  Sex: Female

DRUGS (2)
  1. ZOPHREN [Concomitant]
     Active Substance: ONDANSETRON
     Indication: LYMPHOMA
     Route: 041
     Dates: start: 20121011, end: 20121018
  2. ROMIDEPSIN. [Suspect]
     Active Substance: ROMIDEPSIN
     Indication: LYMPHOMA
     Route: 041
     Dates: start: 20121011, end: 20121018

REACTIONS (2)
  - Eosinophilia [Recovered/Resolved]
  - Interstitial lung disease [Recovered/Resolved]

NARRATIVE: CASE EVENT DATE: 20121025
